FAERS Safety Report 24980650 (Version 2)
Quarter: 2025Q1

REPORT INFORMATION
  Report Type: Spontaneous
  Country: GB (occurrence: GB)
  Receive Date: 20250218
  Receipt Date: 20250228
  Transmission Date: 20250409
  Serious: Yes (Other)
  Sender: TEVA
  Company Number: GB-MLMSERVICE-20240928-PI201627-00270-4

PATIENT
  Sex: Female

DRUGS (2)
  1. PREDNISOLONE [Suspect]
     Active Substance: PREDNISOLONE
     Indication: Immunosuppressant drug therapy
     Route: 065
  2. SIROLIMUS [Suspect]
     Active Substance: SIROLIMUS
     Indication: Immunosuppressant drug therapy
     Route: 065

REACTIONS (4)
  - Mycobacterium chelonae infection [Recovering/Resolving]
  - Atypical mycobacterial pneumonia [Recovering/Resolving]
  - Skin bacterial infection [Recovering/Resolving]
  - Pneumothorax [Recovering/Resolving]
